FAERS Safety Report 7118162-4 (Version None)
Quarter: 2010Q4

REPORT INFORMATION
  Report Type: 
  Country: None (occurrence: None)
  Receive Date: 20101123
  Receipt Date: 20101116
  Transmission Date: 20110411
  Serious: Yes (Hospitalization)
  Sender: FDA-Public Use
  Company Number: BR-US-EMD SERONO, INC.-7028109

PATIENT
  Sex: Female

DRUGS (3)
  1. REBIF [Suspect]
     Indication: RELAPSING-REMITTING MULTIPLE SCLEROSIS
     Dates: start: 20021030
  2. CARBAMAZEPINE [Concomitant]
  3. ALPRAZOLAM [Concomitant]

REACTIONS (4)
  - BLINDNESS UNILATERAL [None]
  - COORDINATION ABNORMAL [None]
  - HYPOAESTHESIA [None]
  - PARAESTHESIA [None]
